FAERS Safety Report 18416225 (Version 1)
Quarter: 2020Q4

REPORT INFORMATION
  Report Type: Spontaneous
  Country: GB (occurrence: GB)
  Receive Date: 20201022
  Receipt Date: 20201022
  Transmission Date: 20210114
  Serious: Yes (Disabling)
  Sender: FDA-Public Use
  Company Number: NVSC2020GB279323

PATIENT
  Age: 65 Year
  Sex: Female
  Weight: 60.6 kg

DRUGS (3)
  1. EVACAL D3 [Concomitant]
     Indication: PRODUCT USED FOR UNKNOWN INDICATION
     Dosage: CHEWABLE
     Route: 065
  2. LETROZOLE. [Suspect]
     Active Substance: LETROZOLE
     Indication: INVASIVE BREAST CARCINOMA
     Dosage: 2.5 MG
     Route: 048
     Dates: start: 20190717, end: 20200709
  3. ALENDRONIC ACID [Concomitant]
     Active Substance: ALENDRONIC ACID
     Indication: PRODUCT USED FOR UNKNOWN INDICATION
     Dosage: UNK
     Route: 065

REACTIONS (4)
  - Trigger finger [Recovered/Resolved]
  - Cardiomyopathy [Not Recovered/Not Resolved]
  - Ventricular tachycardia [Unknown]
  - Extrasystoles [Unknown]

NARRATIVE: CASE EVENT DATE: 201910
